FAERS Safety Report 9061454 (Version 1)
Quarter: 2013Q1

REPORT INFORMATION
  Report Type: Spontaneous
  Country: US (occurrence: None)
  Receive Date: 20130211
  Receipt Date: 20130211
  Transmission Date: 20140127
  Serious: Yes (Life-Threatening, Hospitalization)
  Sender: FDA-Public Use
  Company Number: None

PATIENT
  Age: 75 Year
  Sex: Male
  Weight: 77.3 kg

DRUGS (1)
  1. HEPARIN [Suspect]
     Route: 042
     Dates: start: 20121109, end: 20121109

REACTIONS (6)
  - Confusional state [None]
  - Hypotension [None]
  - Lethargy [None]
  - Unresponsive to stimuli [None]
  - Shock haemorrhagic [None]
  - Intra-abdominal haemorrhage [None]
